FAERS Safety Report 7438130-2 (Version None)
Quarter: 2011Q2

REPORT INFORMATION
  Report Type: 
  Country: None (occurrence: None)
  Receive Date: 20110426
  Receipt Date: 20110412
  Transmission Date: 20111010
  Serious: Yes (Life-Threatening, Other)
  Sender: FDA-Public Use
  Company Number: FR-PFIZER INC-2011066738

PATIENT
  Age: 62 Year
  Sex: Male

DRUGS (10)
  1. SEVIKAR [Suspect]
     Dosage: 10/40 MG/DAY
     Route: 048
     Dates: start: 20100101, end: 20110117
  2. ATENOLOL [Concomitant]
     Dosage: 100 MG, UNK
  3. SERETIDE [Concomitant]
  4. SIMVASTATIN [Concomitant]
     Dosage: 40 MG, UNK
  5. IPRATROPIUM [Concomitant]
  6. ALDACTONE [Suspect]
     Dosage: 75 MG, UNK
     Route: 048
     Dates: end: 20110117
  7. SEROPLEX [Concomitant]
  8. NEXIUM [Concomitant]
     Dosage: 20 MG, UNK
  9. MEPRONIZINE [Concomitant]
  10. SALBUTAMOL [Concomitant]

REACTIONS (5)
  - HYPERKALAEMIA [None]
  - GASTROENTERITIS [None]
  - CARDIO-RESPIRATORY ARREST [None]
  - RENAL FAILURE ACUTE [None]
  - VASOPLEGIA SYNDROME [None]
